FAERS Safety Report 17337912 (Version 3)
Quarter: 2020Q1

REPORT INFORMATION
  Report Type: Spontaneous
  Country: JP (occurrence: JP)
  Receive Date: 20200129
  Receipt Date: 20200320
  Transmission Date: 20200409
  Serious: Yes (Other)
  Sender: FDA-Public Use
  Company Number: JP-SA-2020SA018072

PATIENT
  Age: 65 Year
  Sex: Male

DRUGS (4)
  1. DOCETAXEL. [Suspect]
     Active Substance: DOCETAXEL
     Indication: PROSTATE CANCER
     Dosage: 55 MG/M2, Q4W
     Route: 041
     Dates: start: 201606, end: 201702
  2. ZOLEDRONIC ACID [Suspect]
     Active Substance: ZOLEDRONIC ACID
     Indication: PRODUCT USED FOR UNKNOWN INDICATION
     Dosage: 4 MG, Q4W
     Route: 065
     Dates: start: 2016, end: 201702
  3. PREDNISOLONE. [Suspect]
     Active Substance: PREDNISOLONE
     Dosage: 7.5 MG
     Route: 065
     Dates: start: 201702
  4. PREDNISOLONE. [Suspect]
     Active Substance: PREDNISOLONE
     Indication: PROSTATE CANCER
     Dosage: 10 MG
     Route: 065
     Dates: start: 201606, end: 201702

REACTIONS (2)
  - Inflammation [Recovering/Resolving]
  - Pneumatosis intestinalis [Recovering/Resolving]

NARRATIVE: CASE EVENT DATE: 201702
